FAERS Safety Report 25774249 (Version 1)
Quarter: 2025Q3

REPORT INFORMATION
  Report Type: Spontaneous
  Country: JP (occurrence: JP)
  Receive Date: 20250908
  Receipt Date: 20250908
  Transmission Date: 20251020
  Serious: Yes (Other)
  Sender: JOHNSON AND JOHNSON
  Company Number: JP-JNJFOC-20250834524

PATIENT

DRUGS (1)
  1. REMICADE [Suspect]
     Active Substance: INFLIXIMAB
     Indication: Product used for unknown indication
     Route: 041

REACTIONS (8)
  - Pneumonia [Unknown]
  - Tuberculosis [Unknown]
  - Infusion related reaction [Unknown]
  - Psoriasis [Unknown]
  - Gastroenteritis [Unknown]
  - Liver disorder [Unknown]
  - Rash [Unknown]
  - Upper respiratory tract infection [Unknown]
